FAERS Safety Report 6818142-X (Version None)
Quarter: 2010Q3

REPORT INFORMATION
  Report Type: 
  Country: None (occurrence: None)
  Receive Date: 20100706
  Receipt Date: 20100628
  Transmission Date: 20110219
  Serious: Yes (Hospitalization)
  Sender: FDA-Public Use
  Company Number: US-WYE-H15899210

PATIENT
  Sex: Male

DRUGS (4)
  1. RAPAMUNE [Suspect]
     Indication: PROPHYLAXIS AGAINST TRANSPLANT REJECTION
     Route: 048
     Dates: start: 20100322
  2. PRAVACHOL [Concomitant]
     Dosage: UNKNOWN
     Dates: start: 20091222
  3. METOPROLOL TARTRATE [Concomitant]
     Dosage: UNKNOWN
     Dates: start: 20090917
  4. LISINOPRIL [Concomitant]
     Dosage: UNKNOWN
     Dates: start: 20091217

REACTIONS (1)
  - COLITIS ULCERATIVE [None]
